FAERS Safety Report 10735180 (Version 1)
Quarter: 2015Q1

REPORT INFORMATION
  Report Type: Spontaneous
  Country: US (occurrence: US)
  Receive Date: 20150125
  Receipt Date: 20150125
  Transmission Date: 20150721
  Serious: Yes (Hospitalization)
  Sender: FDA-Public Use
  Company Number: US-JNJFOC-20150104431

PATIENT
  Age: 20 Year
  Sex: Female

DRUGS (2)
  1. ACETAMINOPHEN. [Suspect]
     Active Substance: ACETAMINOPHEN
     Route: 048
  2. ACETAMINOPHEN. [Suspect]
     Active Substance: ACETAMINOPHEN
     Indication: SUICIDE ATTEMPT
     Dosage: AROUND 1000 IN THE MORNING
     Route: 048
     Dates: start: 20050209

REACTIONS (2)
  - Toxicity to various agents [Unknown]
  - Acidosis [Unknown]

NARRATIVE: CASE EVENT DATE: 20050209
